FAERS Safety Report 4618473-8 (Version None)
Quarter: 2005Q1

REPORT INFORMATION
  Report Type: 
  Country: None (occurrence: None)
  Receive Date: 20050324
  Receipt Date: 20050316
  Transmission Date: 20050727
  Serious: Yes (Other)
  Sender: FDA-Public Use
  Company Number: JP-MERCK-0503USA03111

PATIENT
  Age: 20 Day
  Sex: Female
  Weight: 1 kg

DRUGS (7)
  1. INDOCIN [Suspect]
     Indication: PATENT DUCTUS ARTERIOSUS
     Route: 042
  2. DECADRON [Suspect]
     Indication: PATENT DUCTUS ARTERIOSUS
     Route: 041
  3. DECADRON [Suspect]
     Route: 041
  4. DECADRON [Suspect]
     Route: 041
  5. INDOCIN [Suspect]
     Route: 042
  6. INDOCIN [Suspect]
     Route: 042
  7. INDOCIN [Suspect]
     Route: 042

REACTIONS (2)
  - BLOOD PRESSURE INCREASED [None]
  - PATENT DUCTUS ARTERIOSUS [None]
